FAERS Safety Report 11653297 (Version 1)
Quarter: 2015Q4

REPORT INFORMATION
  Report Type: Spontaneous
  Country: US (occurrence: US)
  Receive Date: 20151022
  Receipt Date: 20151022
  Transmission Date: 20160304
  Serious: Yes (Other)
  Sender: FDA-Public Use
  Company Number: US-SHIRE-US201512751

PATIENT
  Sex: Female

DRUGS (1)
  1. INTUNIV [Suspect]
     Active Substance: GUANFACINE HYDROCHLORIDE
     Indication: ATTENTION DEFICIT/HYPERACTIVITY DISORDER
     Dosage: 4 MG, 1X/DAY:QD
     Route: 048

REACTIONS (15)
  - Epistaxis [Unknown]
  - Depressed mood [Unknown]
  - Headache [Recovered/Resolved]
  - Psychomotor hyperactivity [Recovering/Resolving]
  - Restlessness [Unknown]
  - Disturbance in attention [Unknown]
  - Palpitations [Unknown]
  - Tremor [Unknown]
  - Dizziness [Unknown]
  - Withdrawal syndrome [Unknown]
  - Pain in extremity [Unknown]
  - Initial insomnia [Unknown]
  - Hyperventilation [Unknown]
  - Rhinorrhoea [Unknown]
  - Drug dose omission [Unknown]

NARRATIVE: CASE EVENT DATE: 20151009
